FAERS Safety Report 22054778 (Version 1)
Quarter: 2023Q1

REPORT INFORMATION
  Report Type: Spontaneous
  Country: US (occurrence: US)
  Receive Date: 20230302
  Receipt Date: 20230302
  Transmission Date: 20230418
  Serious: No
  Sender: FDA-Public Use
  Company Number: US-PFIZER INC-202300087230

PATIENT
  Age: 79 Year
  Sex: Female
  Weight: 68.95 kg

DRUGS (3)
  1. PAXLOVID [Suspect]
     Active Substance: NIRMATRELVIR\RITONAVIR
     Indication: COVID-19 treatment
     Dosage: UNK
     Dates: start: 20230227
  2. METOPROLOL TARTRATE [Suspect]
     Active Substance: METOPROLOL TARTRATE
     Dosage: 25 MG, 1X/DAY, (ONCE A DAY)
  3. AMLODIPINE [Suspect]
     Active Substance: AMLODIPINE BESYLATE
     Dosage: 5 MG, 1X/DAY, [ONE TABLET ONCE A DAY]

REACTIONS (2)
  - Dysgeusia [Unknown]
  - Discomfort [Unknown]

NARRATIVE: CASE EVENT DATE: 20230227
